FAERS Safety Report 6287304-5 (Version None)
Quarter: 2009Q3

REPORT INFORMATION
  Report Type: 
  Country: None (occurrence: None)
  Receive Date: 20090728
  Receipt Date: 20090717
  Transmission Date: 20100115
  Serious: Yes (Other)
  Sender: FDA-Public Use
  Company Number: US-PFIZER INC-2009226358

PATIENT
  Sex: Male
  Weight: 69.841 kg

DRUGS (8)
  1. ZOLOFT [Suspect]
     Indication: DEPRESSION
     Dosage: 100 MG, UNK
     Dates: start: 20020101
  2. BUPROPION [Concomitant]
     Dosage: UNK
  3. FLUOXETINE [Concomitant]
     Dosage: UNK
  4. CITALOPRAM [Concomitant]
     Dosage: UNK
  5. OLANZAPINE [Concomitant]
     Dosage: UNK
  6. PREGABALIN [Concomitant]
     Dosage: UNK
  7. IBUPROFEN [Concomitant]
     Dosage: UNK
  8. OXCARBAZEPINE [Concomitant]
     Dosage: UNK

REACTIONS (5)
  - ANKLE FRACTURE [None]
  - CARDIAC VALVE DISEASE [None]
  - DEPRESSION [None]
  - DIZZINESS [None]
  - TOOTH ABSCESS [None]
